FAERS Safety Report 9753396 (Version 2)
Quarter: 2013Q4

REPORT INFORMATION
  Report Type: Spontaneous
  Country: US (occurrence: US)
  Receive Date: 20131213
  Receipt Date: 20131216
  Transmission Date: 20140711
  Serious: No
  Sender: FDA-Public Use
  Company Number: US-TEVA-406674USA

PATIENT
  Age: 32 Year
  Sex: Female
  Weight: 56.75 kg

DRUGS (3)
  1. PARAGARD 380A [Suspect]
     Indication: CONTRACEPTION
     Route: 015
     Dates: start: 200903, end: 20130509
  2. ZOLOFT [Concomitant]
     Indication: DEPRESSION
  3. KLONOPIN [Concomitant]
     Indication: DEPRESSION

REACTIONS (2)
  - Colposcopy [Recovered/Resolved with Sequelae]
  - Medical device complication [Recovered/Resolved with Sequelae]
